FAERS Safety Report 7749200-3 (Version None)
Quarter: 2011Q3

REPORT INFORMATION
  Report Type: 
  Country: None (occurrence: None)
  Receive Date: 20110914
  Receipt Date: 20110912
  Transmission Date: 20111222
  Serious: Yes (Life-Threatening)
  Sender: FDA-Public Use
  Company Number: US-BAYER-2011-084969

PATIENT
  Sex: Female

DRUGS (2)
  1. YASMIN [Suspect]
  2. YAZ [Suspect]

REACTIONS (8)
  - MYOCARDIAL INFARCTION [None]
  - PAIN [None]
  - ANXIETY [None]
  - INJURY [None]
  - ANHEDONIA [None]
  - CHEST PAIN [None]
  - DIZZINESS [None]
  - EMOTIONAL DISTRESS [None]
